FAERS Safety Report 4378762-1 (Version None)
Quarter: 2004Q2

REPORT INFORMATION
  Report Type: 
  Country: None (occurrence: None)
  Receive Date: 20040609
  Receipt Date: 20040524
  Transmission Date: 20050107
  Serious: Yes (Other)
  Sender: FDA-Public Use
  Company Number: USA030331186

PATIENT
  Age: 68 Year
  Sex: Female
  Weight: 75 kg

DRUGS (12)
  1. FORTEO [Suspect]
     Dosage: 20 UG/DAY
     Dates: start: 20030306
  2. AMBIEN [Concomitant]
  3. CALCIUM [Concomitant]
  4. MULTI-VITAMINS [Concomitant]
  5. PAXIL [Concomitant]
  6. PREVACID [Concomitant]
  7. PROCRIT (ERYTHROPOIETIN) [Concomitant]
  8. VOLTAREN [Concomitant]
  9. NEURONTIN [Concomitant]
  10. TYLENOL [Concomitant]
  11. EXTRA STRENGTH TYLENOL [Concomitant]
  12. PROTONIX [Concomitant]

REACTIONS (10)
  - ANXIETY [None]
  - DIARRHOEA [None]
  - DIZZINESS [None]
  - FEELING ABNORMAL [None]
  - HEADACHE [None]
  - IRRITABILITY [None]
  - METASTASES TO KIDNEY [None]
  - MOOD SWINGS [None]
  - NEPHRECTOMY [None]
  - URETERIC CANCER [None]
